FAERS Safety Report 5148945-1 (Version None)
Quarter: 2006Q4

REPORT INFORMATION
  Report Type: 
  Country: None (occurrence: None)
  Receive Date: 20061113
  Receipt Date: 20061024
  Transmission Date: 20070319
  Serious: Yes (Other)
  Sender: FDA-Public Use
  Company Number: PHBS2006BR16861

PATIENT
  Age: 54 Year
  Sex: Female
  Weight: 67 kg

DRUGS (1)
  1. VOLTAREN [Suspect]
     Indication: EXOSTOSIS
     Route: 042

REACTIONS (12)
  - ANOREXIA [None]
  - APPLICATION SITE SWELLING [None]
  - DIZZINESS [None]
  - DYSPNOEA [None]
  - INCORRECT DOSE ADMINISTERED [None]
  - INCORRECT ROUTE OF DRUG ADMINISTRATION [None]
  - INJECTION SITE PHLEBITIS [None]
  - MEMORY IMPAIRMENT [None]
  - MONOPLEGIA [None]
  - NERVOUSNESS [None]
  - VISUAL DISTURBANCE [None]
  - VOMITING [None]
